FAERS Safety Report 10103816 (Version 2)
Quarter: 2014Q2

REPORT INFORMATION
  Report Type: Other
  Country: US (occurrence: US)
  Receive Date: 20140424
  Receipt Date: 20140618
  Transmission Date: 20141212
  Serious: Yes (Hospitalization, Other)
  Sender: FDA-Public Use
  Company Number: US-GSKPPD-2014GSK001420

PATIENT
  Age: 66 Year
  Sex: Male

DRUGS (3)
  1. AVANDIA [Suspect]
     Indication: DIABETES MELLITUS
     Route: 048
     Dates: start: 2005, end: 2007
  2. TOPROL [Concomitant]
  3. ASPIRIN [Concomitant]

REACTIONS (2)
  - Vascular graft [Recovered/Resolved]
  - Arteriosclerosis [Recovered/Resolved]
